FAERS Safety Report 17102650 (Version 1)
Quarter: 2019Q4

REPORT INFORMATION
  Report Type: Spontaneous
  Country: GB (occurrence: GB)
  Receive Date: 20191202
  Receipt Date: 20191202
  Transmission Date: 20200122
  Serious: Yes (Other)
  Sender: FDA-Public Use
  Company Number: GB-ACCORD-163239

PATIENT
  Age: 45 Year
  Sex: Male
  Weight: 57 kg

DRUGS (9)
  1. PREGABALIN. [Concomitant]
     Active Substance: PREGABALIN
  2. ACCORD HEALTHCARE FINASTERIDE [Suspect]
     Active Substance: FINASTERIDE
     Indication: ANDROGENETIC ALOPECIA
     Route: 048
     Dates: start: 20191005, end: 20191007
  3. LACOSAMIDE. [Concomitant]
     Active Substance: LACOSAMIDE
  4. VERMOX [Concomitant]
     Active Substance: MEBENDAZOLE
  5. METFORMIN [Concomitant]
     Active Substance: METFORMIN HYDROCHLORIDE
  6. ATORVASTATIN [Concomitant]
     Active Substance: ATORVASTATIN
  7. CLOBAZAM. [Concomitant]
     Active Substance: CLOBAZAM
  8. SERENOA REPENS [Concomitant]
     Active Substance: SERENOA REPENS WHOLE
  9. KEPPRA [Concomitant]
     Active Substance: LEVETIRACETAM

REACTIONS (13)
  - Painful ejaculation [Not Recovered/Not Resolved]
  - Hypohidrosis [Recovered/Resolved with Sequelae]
  - Abnormal dreams [Recovering/Resolving]
  - Ejaculation failure [Recovering/Resolving]
  - Dry skin [Recovered/Resolved with Sequelae]
  - Dry mouth [Recovering/Resolving]
  - Insomnia [Recovered/Resolved with Sequelae]
  - Dry eye [Recovering/Resolving]
  - Fatigue [Recovered/Resolved with Sequelae]
  - Illusion [Recovered/Resolved with Sequelae]
  - Hair texture abnormal [Recovered/Resolved]
  - Off label use [Unknown]
  - Chapped lips [Recovering/Resolving]

NARRATIVE: CASE EVENT DATE: 20191005
